FAERS Safety Report 12199908 (Version 3)
Quarter: 2016Q2

REPORT INFORMATION
  Report Type: Spontaneous
  Country: IT (occurrence: IT)
  Receive Date: 20160322
  Receipt Date: 20160411
  Transmission Date: 20160815
  Serious: Yes (Death)
  Sender: FDA-Public Use
  Company Number: IT-SA-2016SA057243

PATIENT
  Age: 47 Year
  Sex: Male

DRUGS (2)
  1. NICOZID [Concomitant]
     Active Substance: ISONIAZID
     Indication: TUBERCULOSIS
     Route: 048
     Dates: start: 20151204, end: 20160318
  2. LEMTRADA [Suspect]
     Active Substance: ALEMTUZUMAB
     Indication: MULTIPLE SCLEROSIS
     Route: 065
     Dates: start: 20160203, end: 20160209

REACTIONS (1)
  - Death [Fatal]

NARRATIVE: CASE EVENT DATE: 20160318
